FAERS Safety Report 12389895 (Version 1)
Quarter: 2016Q2

REPORT INFORMATION
  Report Type: Report from Study
  Country: FR (occurrence: FR)
  Receive Date: 20160520
  Receipt Date: 20160520
  Transmission Date: 20160815
  Serious: Yes (Other)
  Sender: FDA-Public Use
  Company Number: FR-SA-2016SA094374

PATIENT
  Age: 77 Year
  Sex: Male

DRUGS (2)
  1. CAMPATH [Suspect]
     Active Substance: ALEMTUZUMAB
     Indication: T-CELL PROLYMPHOCYTIC LEUKAEMIA
     Dosage: FREQUENCY-3 TIMES PER WEEK
     Route: 042
     Dates: start: 20150831, end: 20150921
  2. CAMPATH [Suspect]
     Active Substance: ALEMTUZUMAB
     Indication: T-CELL PROLYMPHOCYTIC LEUKAEMIA
     Dosage: FREQUENCY-3 TIMES PER WEEK
     Route: 042
     Dates: start: 20150713, end: 20150820

REACTIONS (5)
  - Pneumonia [Unknown]
  - Infective uveitis [Unknown]
  - General physical health deterioration [Unknown]
  - Bronchopulmonary aspergillosis [Unknown]
  - Eye infection toxoplasmal [Unknown]

NARRATIVE: CASE EVENT DATE: 20150820
